FAERS Safety Report 23995709 (Version 2)
Quarter: 2025Q3

REPORT INFORMATION
  Report Type: Report from Study
  Country: EU (occurrence: EU)
  Receive Date: 20240620
  Receipt Date: 20250708
  Transmission Date: 20251021
  Serious: Yes (Hospitalization)
  Sender: MYLAN
  Company Number: EU-BPPPROD-2023000689

PATIENT
  Age: 59 Year
  Sex: Male
  Weight: 98 kg

DRUGS (9)
  1. GABAPENTIN [Suspect]
     Active Substance: GABAPENTIN
     Indication: Product used for unknown indication
     Dosage: 600 MILLIGRAM, QD
  2. GABAPENTIN [Suspect]
     Active Substance: GABAPENTIN
     Indication: Product used for unknown indication
     Dosage: 100 MILLIGRAM, QD
  3. PITOLISANT HYDROCHLORIDE [Suspect]
     Active Substance: PITOLISANT HYDROCHLORIDE
     Indication: Obstructive sleep apnoea syndrome
     Dosage: 4.5 MILLIGRAM, QD
     Dates: start: 20230908, end: 20230915
  4. PITOLISANT HYDROCHLORIDE [Suspect]
     Active Substance: PITOLISANT HYDROCHLORIDE
     Dosage: 9 MILLIGRAM, QD
     Dates: start: 20230916, end: 20230922
  5. PITOLISANT HYDROCHLORIDE [Suspect]
     Active Substance: PITOLISANT HYDROCHLORIDE
     Dosage: 18 MILLIGRAM, QD
     Dates: start: 20230923, end: 20240603
  6. PAROXETINE HYDROCHLORIDE [Suspect]
     Active Substance: PAROXETINE HYDROCHLORIDE
     Indication: Product used for unknown indication
     Dosage: 20 MILLIGRAM, QD
  7. KEPPRA [Suspect]
     Active Substance: LEVETIRACETAM
     Indication: Product used for unknown indication
     Dosage: 1500 MILLIGRAM, QD
     Dates: start: 202405, end: 202406
  8. MIRTAZAPINE [Concomitant]
     Active Substance: MIRTAZAPINE
     Dosage: 15 MILLIGRAM, QD
  9. Pantomed [Concomitant]
     Dosage: 20 MILLIGRAM, QD

REACTIONS (6)
  - Epilepsy [Recovered/Resolved]
  - Headache [Recovered/Resolved]
  - Fatigue [Recovered/Resolved]
  - Weight increased [Recovered/Resolved]
  - Dizziness [Recovered/Resolved]
  - Therapy cessation [Unknown]

NARRATIVE: CASE EVENT DATE: 20230908
